FAERS Safety Report 15893746 (Version 2)
Quarter: 2020Q3

REPORT INFORMATION
  Report Type: Spontaneous
  Country: RU (occurrence: RU)
  Receive Date: 20190131
  Receipt Date: 20200713
  Transmission Date: 20201102
  Serious: Yes (Other)
  Sender: FDA-Public Use
  Company Number: RU-BRISTOL-MYERS SQUIBB COMPANY-BMS-2019-008599

PATIENT
  Age: 42 Year
  Sex: Female

DRUGS (3)
  1. NILOTINIB [Suspect]
     Active Substance: NILOTINIB
     Indication: ACUTE LYMPHOCYTIC LEUKAEMIA
     Dosage: UNK
     Route: 065
  2. BLINATUMOMAB [Suspect]
     Active Substance: BLINATUMOMAB
     Indication: ACUTE LYMPHOCYTIC LEUKAEMIA
     Dosage: 28 MICROG PER DAY FOR 4 WEEKS EACH CYCLE WITH 9 MCG/DAY DURING FST OF FIRST CYCLE
     Route: 065
  3. DASATINIB. [Suspect]
     Active Substance: DASATINIB
     Indication: ACUTE LYMPHOCYTIC LEUKAEMIA
     Dosage: 140 MG PER DAY PER OS
     Route: 065

REACTIONS (3)
  - Cytomegalovirus colitis [Unknown]
  - Lung infiltration [Recovered/Resolved]
  - Pleural effusion [Recovered/Resolved]
